FAERS Safety Report 5202176-5 (Version None)
Quarter: 2007Q1

REPORT INFORMATION
  Report Type: 
  Country: None (occurrence: None)
  Receive Date: 20070109
  Receipt Date: 20070104
  Transmission Date: 20070707
  Serious: Yes (Hospitalization)
  Sender: FDA-Public Use
  Company Number: 2007AP00179

PATIENT
  Age: 25382 Day
  Sex: Female
  Weight: 118 kg

DRUGS (6)
  1. NEXIUM [Suspect]
     Indication: OESOPHAGEAL DISORDER
     Route: 048
  2. MICARDIS [Suspect]
     Indication: ESSENTIAL HYPERTENSION
     Route: 048
  3. VOLTAREN [Suspect]
     Indication: OSTEOARTHRITIS
     Dates: end: 20060811
  4. ALLOPURINOL SODIUM [Suspect]
     Indication: GOUT
     Route: 048
  5. PROFLOXIN [Suspect]
     Route: 048
     Dates: start: 20060807, end: 20060811
  6. GENTAMICIN SULFATE [Suspect]
     Route: 030
     Dates: start: 20060807, end: 20060810

REACTIONS (1)
  - RENAL FAILURE ACUTE [None]
